FAERS Safety Report 21229331 (Version 2)
Quarter: 2023Q1

REPORT INFORMATION
  Report Type: Report from Study
  Country: IL (occurrence: IL)
  Receive Date: 20220818
  Receipt Date: 20230106
  Transmission Date: 20230418
  Serious: Yes (Hospitalization, Other)
  Sender: FDA-Public Use
  Company Number: IL-ABBVIE-21K-082-3843477-00

PATIENT
  Age: 69 Year
  Sex: Male

DRUGS (14)
  1. VENCLEXTA [Suspect]
     Active Substance: VENETOCLAX
     Indication: Chronic lymphocytic leukaemia
     Dosage: RAMP UP
     Route: 048
     Dates: start: 20200812, end: 20200818
  2. VENCLEXTA [Suspect]
     Active Substance: VENETOCLAX
     Indication: Chronic lymphocytic leukaemia
     Dosage: RAMP UP
     Route: 048
     Dates: start: 20200819, end: 20200825
  3. VENCLEXTA [Suspect]
     Active Substance: VENETOCLAX
     Indication: Chronic lymphocytic leukaemia
     Dosage: 100 MILLIGRAM
     Route: 048
     Dates: start: 20200826, end: 20200901
  4. VENCLEXTA [Suspect]
     Active Substance: VENETOCLAX
     Indication: Chronic lymphocytic leukaemia
     Dosage: RAMP UP
     Route: 048
     Dates: start: 20200902, end: 20200908
  5. VENCLEXTA [Suspect]
     Active Substance: VENETOCLAX
     Indication: Chronic lymphocytic leukaemia
     Dosage: 400 MILLIGRAM
     Route: 048
     Dates: start: 20200909, end: 20210419
  6. VENCLEXTA [Suspect]
     Active Substance: VENETOCLAX
     Indication: Chronic lymphocytic leukaemia
     Dosage: 200MILIGRAM?INTERRUPTION COVID-19 INFECTION
     Route: 048
     Dates: start: 20210602, end: 20220711
  7. ALLOPURINOL [Concomitant]
     Active Substance: ALLOPURINOL
     Indication: Prophylaxis
     Dates: start: 20200809
  8. LOSARTAN POTASSIUM AND HYDROCHLOROTHIAZIDE [Concomitant]
     Active Substance: HYDROCHLOROTHIAZIDE\LOSARTAN POTASSIUM
     Indication: Hypertension
     Dates: start: 20200608
  9. TAMSULOSIN HYDROCHLORIDE [Concomitant]
     Active Substance: TAMSULOSIN HYDROCHLORIDE
     Indication: Lower urinary tract symptoms
     Dates: start: 20200608
  10. LAMIVUDINE [Concomitant]
     Active Substance: LAMIVUDINE
     Indication: Chronic hepatitis B
     Dates: start: 20200618
  11. ZOVIRAX [Concomitant]
     Active Substance: ACYCLOVIR
     Indication: Antiviral prophylaxis
     Dates: start: 20200729
  12. COVID 19 vaccine [Concomitant]
     Indication: COVID-19 prophylaxis
     Dosage: 200 MILLIGRAM
     Dates: start: 20210602, end: 20210602
  13. COVID 19 vaccine [Concomitant]
     Indication: COVID-19 prophylaxis
     Dosage: ONCE
     Route: 030
     Dates: start: 20201229, end: 20201229
  14. COVID 19 vaccine [Concomitant]
     Indication: COVID-19 prophylaxis
     Dosage: ONCE
     Route: 030
     Dates: start: 20210120, end: 20210120

REACTIONS (7)
  - Neutropenia [Recovered/Resolved]
  - COVID-19 [Recovered/Resolved]
  - Neutropenia [Recovered/Resolved]
  - Pyrexia [Recovered/Resolved]
  - Abdominal pain upper [Recovered/Resolved]
  - Disease progression [Recovered/Resolved]
  - Disease progression [Unknown]

NARRATIVE: CASE EVENT DATE: 20201111
